FAERS Safety Report 5891744-3 (Version None)
Quarter: 2008Q3

REPORT INFORMATION
  Report Type: 
  Country: None (occurrence: None)
  Receive Date: 20080922
  Receipt Date: 20080916
  Transmission Date: 20090109
  Serious: Yes (Hospitalization)
  Sender: FDA-Public Use
  Company Number: US-AVENTIS-200813921US

PATIENT
  Sex: Male
  Weight: 77.1 kg

DRUGS (5)
  1. LANTUS [Suspect]
     Dates: start: 20070901
  2. LANTUS [Suspect]
  3. LANTUS [Suspect]
     Dates: start: 20071201
  4. OPTICLIK (INSULIN INJECTION PEN) [Suspect]
     Dates: start: 20071201
  5. ZYRTEC [Concomitant]
     Dosage: DOSE: UNK

REACTIONS (7)
  - HYPOGLYCAEMIC SEIZURE [None]
  - INJECTION SITE HAEMORRHAGE [None]
  - LOSS OF CONSCIOUSNESS [None]
  - MUSCLE SPASMS [None]
  - TONGUE BITING [None]
  - TONGUE HAEMORRHAGE [None]
  - TREMOR [None]
